FAERS Safety Report 21132618 (Version 8)
Quarter: 2023Q1

REPORT INFORMATION
  Report Type: Other
  Country: IL (occurrence: None)
  Receive Date: 20220726
  Receipt Date: 20230117
  Transmission Date: 20230418
  Serious: Yes (Hospitalization)
  Sender: FDA-Public Use
  Company Number: IL-ROCHE-3143502

PATIENT
  Age: 67 Year
  Sex: Male
  Weight: 67 kg

DRUGS (2)
  1. ALECTINIB [Suspect]
     Active Substance: ALECTINIB
     Indication: Non-small cell lung cancer
     Dosage: DOSE LAST STUDY DRUG ADMIN PRIOR AE AND SAE WAS 600 MG. START DATE OF MOST RECENT DOSE OF STUDY DRUG
     Route: 048
     Dates: start: 20220504
  2. ALFUZOSIN HYDROCHLORIDE [Concomitant]
     Active Substance: ALFUZOSIN HYDROCHLORIDE
     Dosage: TO TREAT BENIGN ENLARGEMENT OF THE PROSTATE GLAND.
     Route: 048
     Dates: start: 20220315

REACTIONS (3)
  - Blood bilirubin increased [Recovered/Resolved]
  - Haemolytic anaemia [Recovered/Resolved]
  - COVID-19 [Recovered/Resolved]

NARRATIVE: CASE EVENT DATE: 20220630
